FAERS Safety Report 16537706 (Version 2)
Quarter: 2019Q3

REPORT INFORMATION
  Report Type: Report from Study
  Country: KR (occurrence: KR)
  Receive Date: 20190708
  Receipt Date: 20190718
  Transmission Date: 20191004
  Serious: Yes (Hospitalization)
  Sender: FDA-Public Use
  Company Number: KR-CELLTRION INC.-2019KR022421

PATIENT

DRUGS (17)
  1. KABITWIN PERI [Concomitant]
     Indication: PROPHYLAXIS
     Dosage: 1000 ML, QD
     Route: 042
     Dates: start: 20181212, end: 20181212
  2. DICLOMED [DICLOFENAC] [Concomitant]
     Indication: PROPHYLAXIS
     Dosage: 1 AMP AS NEEDED
     Route: 048
     Dates: start: 20181204, end: 20181215
  3. NEURONTIN [Concomitant]
     Active Substance: GABAPENTIN
     Indication: CANCER PAIN
     Dosage: 2 TABS TID
     Route: 048
     Dates: start: 20181208, end: 20181229
  4. HEXAMEDINE [Concomitant]
     Indication: PROPHYLAXIS
     Dosage: 1 AMP QD
     Dates: start: 20181204, end: 20181215
  5. DEXA S [Concomitant]
     Indication: CANCER PAIN
     Dosage: 8 ML, QD
     Route: 042
     Dates: start: 20181212, end: 20181212
  6. TRUXIMA [Suspect]
     Active Substance: RITUXIMAB-ABBS
     Indication: DIFFUSE LARGE B-CELL LYMPHOMA
     Dosage: 700 MG, EVERY 3 WEEKS
     Route: 042
     Dates: start: 20181127, end: 20181127
  7. VANCOMYCIN [Concomitant]
     Active Substance: VANCOMYCIN
     Indication: PROPHYLAXIS
     Dosage: 2.5 G, BID
     Route: 042
     Dates: start: 20181205, end: 20181212
  8. TACENOL [Concomitant]
     Indication: CANCER PAIN
     Dosage: 2 TAB TID
     Route: 048
     Dates: start: 20181127, end: 20181222
  9. MEROPEN [MEROPENEM TRIHYDRATE] [Concomitant]
     Indication: PROPHYLAXIS
     Dosage: 2 G, TID
     Route: 042
     Dates: start: 20181205, end: 20181214
  10. DUPHALAC [Concomitant]
     Active Substance: LACTULOSE
     Indication: PROPHYLAXIS
     Dosage: 1 PACK TID
     Route: 048
     Dates: start: 20181206, end: 20181221
  11. IRCODON [Concomitant]
     Active Substance: OXYCODONE HYDROCHLORIDE
     Indication: CANCER PAIN
     Dosage: 1 TAB TID
     Route: 048
     Dates: start: 20181215, end: 20181215
  12. NEUTROGIN [Concomitant]
     Active Substance: LENOGRASTIM
     Indication: CYTOPENIA
     Dosage: 1 AMP QD
     Route: 058
     Dates: start: 20181203, end: 20181213
  13. TARGIN [Concomitant]
     Active Substance: NALOXONE HYDROCHLORIDE\OXYCODONE HYDROCHLORIDE
     Indication: CANCER PAIN
     Dosage: 1 TAB BID
     Route: 048
     Dates: start: 20181207, end: 20181229
  14. PANTOLOC [PANTOPRAZOLE] [Concomitant]
     Active Substance: PANTOPRAZOLE SODIUM
     Indication: PROPHYLAXIS
     Dosage: 1 TAB, QD
     Route: 048
     Dates: start: 20181125
  15. NEULASTA [Concomitant]
     Active Substance: PEGFILGRASTIM
     Indication: PROPHYLAXIS
     Dosage: 1 AMP QD
     Route: 058
     Dates: start: 20181129, end: 20181213
  16. SEPTRIN [Concomitant]
     Active Substance: SULFAMETHOXAZOLE\TRIMETHOPRIM
     Indication: INFECTION PROPHYLAXIS
     Dosage: 1 TAB, QD
     Route: 048
     Dates: start: 20181127
  17. PAMISOL [ACETYLCYSTEINE;ALANINE;ARGININE;GLYCINE;HISTIDINE;ISOLEUCINE; [Concomitant]
     Indication: PROPHYLAXIS
     Dosage: 500 ML, QD
     Route: 042
     Dates: start: 20181206, end: 20181214

REACTIONS (1)
  - Cerebrospinal fluid leakage [Recovered/Resolved]

NARRATIVE: CASE EVENT DATE: 20181210
